FAERS Safety Report 9210984 (Version 1)
Quarter: 2013Q2

REPORT INFORMATION
  Report Type: Spontaneous
  Country: AR (occurrence: AR)
  Receive Date: 20130404
  Receipt Date: 20130404
  Transmission Date: 20140414
  Serious: Yes (Life-Threatening)
  Sender: FDA-Public Use
  Company Number: AR-B.I. PHARMACEUTICALS,INC./RIDGEFIELD-2012-RA-00047RA

PATIENT
  Age: 59 Year
  Sex: Male

DRUGS (8)
  1. PRADAXA [Suspect]
     Indication: CEREBROVASCULAR ACCIDENT PROPHYLAXIS
     Dosage: 300 MG
     Route: 048
     Dates: start: 201108, end: 201108
  2. ACENOCUMAROL [Concomitant]
     Indication: CEREBROVASCULAR ACCIDENT PROPHYLAXIS
     Route: 048
     Dates: end: 201108
  3. AMIODARONE [Concomitant]
     Indication: ATRIAL FIBRILLATION
     Dosage: 200 MG
     Route: 048
  4. ENALAPRIL [Concomitant]
     Indication: LEFT VENTRICULAR DYSFUNCTION
     Dosage: 10 MG
     Route: 048
  5. LEVOTIROXINA [Concomitant]
     Indication: HYPOTHYROIDISM
     Route: 048
  6. FUROSEMIDA [Concomitant]
     Indication: LEFT VENTRICULAR DYSFUNCTION
     Route: 048
  7. CARVEDILOL [Concomitant]
     Indication: LEFT VENTRICULAR DYSFUNCTION
     Dosage: 12.5 MG
     Route: 048
  8. OMEPRAZOLE [Concomitant]
     Dosage: 20 MG
     Route: 048

REACTIONS (5)
  - Thrombocytopenia [Recovered/Resolved]
  - Pruritus [Recovered/Resolved]
  - Petechiae [Recovered/Resolved]
  - Haematoma [Recovered/Resolved]
  - Mouth injury [Recovered/Resolved]
